FAERS Safety Report 6375643-9 (Version None)
Quarter: 2009Q3

REPORT INFORMATION
  Report Type: 
  Country: None (occurrence: None)
  Receive Date: 20090918
  Receipt Date: 20090918
  Transmission Date: 20100115
  Serious: Yes (Other)
  Sender: FDA-Public Use
  Company Number: None

PATIENT
  Age: 25 Year
  Sex: Female
  Weight: 56.6996 kg

DRUGS (1)
  1. MIRENA [Suspect]
     Indication: CONTRACEPTION
     Dates: start: 20090714, end: 20090917

REACTIONS (6)
  - ACNE [None]
  - ANXIETY [None]
  - DEPRESSION [None]
  - DIZZINESS [None]
  - MUSCLE SPASMS [None]
  - NERVOUSNESS [None]
